FAERS Safety Report 13959508 (Version 1)
Quarter: 2017Q3

REPORT INFORMATION
  Report Type: Spontaneous
  Country: US (occurrence: US)
  Receive Date: 20170912
  Receipt Date: 20170912
  Transmission Date: 20171128
  Serious: Yes (Hospitalization, Other)
  Sender: FDA-Public Use
  Company Number: US-APOTEX-2017AP018311

PATIENT
  Age: 24 Month
  Sex: Female

DRUGS (1)
  1. ONDANSETRON HYDROCHLORIDE TABLETS USP [Suspect]
     Active Substance: ONDANSETRON HYDROCHLORIDE
     Indication: PRODUCT USED FOR UNKNOWN INDICATION
     Dosage: UNK
     Route: 048

REACTIONS (11)
  - Toxicity to various agents [Unknown]
  - Blood glucose increased [Recovered/Resolved]
  - Electrocardiogram QT prolonged [Recovered/Resolved]
  - Overdose [Unknown]
  - Generalised tonic-clonic seizure [Recovered/Resolved]
  - Body temperature decreased [Recovered/Resolved]
  - Respiratory failure [Recovered/Resolved]
  - Depressed level of consciousness [Recovered/Resolved]
  - Heart rate increased [Recovered/Resolved]
  - Blood potassium decreased [Recovered/Resolved]
  - Blood pressure decreased [Recovered/Resolved]
